FAERS Safety Report 12060597 (Version 2)
Quarter: 2016Q2

REPORT INFORMATION
  Report Type: Spontaneous
  Country: US (occurrence: US)
  Receive Date: 20160210
  Receipt Date: 20160503
  Transmission Date: 20160815
  Serious: Yes (Other)
  Sender: FDA-Public Use
  Company Number: US-PFIZER INC-2016075238

PATIENT
  Age: 66 Year
  Sex: Male

DRUGS (2)
  1. LYRICA [Suspect]
     Active Substance: PREGABALIN
     Indication: NEURALGIA
  2. LYRICA [Suspect]
     Active Substance: PREGABALIN
     Indication: PAIN IN EXTREMITY
     Dosage: 300 MG, 4X/DAY
     Dates: start: 2006

REACTIONS (16)
  - Weight increased [Not Recovered/Not Resolved]
  - Condition aggravated [Not Recovered/Not Resolved]
  - Insomnia [Not Recovered/Not Resolved]
  - Constipation [Not Recovered/Not Resolved]
  - Movement disorder [Not Recovered/Not Resolved]
  - Overdose [Unknown]
  - Suicidal ideation [Not Recovered/Not Resolved]
  - Compulsions [Unknown]
  - Increased appetite [Not Recovered/Not Resolved]
  - Irritability [Not Recovered/Not Resolved]
  - Abnormal behaviour [Not Recovered/Not Resolved]
  - Neuralgia [Not Recovered/Not Resolved]
  - Hostility [Not Recovered/Not Resolved]
  - Suspiciousness [Unknown]
  - Sunburn [Not Recovered/Not Resolved]
  - Aggression [Not Recovered/Not Resolved]
